FAERS Safety Report 19177428 (Version 1)
Quarter: 2021Q2

REPORT INFORMATION
  Report Type: Spontaneous
  Country: US (occurrence: US)
  Receive Date: 20210422
  Receipt Date: 20210422
  Transmission Date: 20210717
  Serious: Yes (Hospitalization)
  Sender: FDA-Public Use
  Company Number: None

PATIENT
  Age: 30 Year
  Sex: Male
  Weight: 70.3 kg

DRUGS (11)
  1. PROPOFOL 200MG/20ML VIAL FRESENIUS [Concomitant]
     Dates: start: 20210422, end: 20210422
  2. LIDOCAINE 1% 2ML FRESENIUS VIAL [Concomitant]
     Dates: start: 20210422, end: 20210422
  3. LIDOCAINE 2% 5ML VIAL FRESENIUS [Concomitant]
     Dates: start: 20210422, end: 20210422
  4. DEXAMETHASONE. [Suspect]
     Active Substance: DEXAMETHASONE
     Indication: ANAESTHESIA
     Dosage: ?          OTHER FREQUENCY:X1;?
     Route: 040
     Dates: start: 20210422, end: 20210422
  5. ONDANSETRON [Suspect]
     Active Substance: ONDANSETRON
     Indication: ANAESTHESIA
     Dosage: ?          OTHER FREQUENCY:X1;?
     Route: 040
     Dates: start: 20210422, end: 20210422
  6. DEXAMETHASONE. [Suspect]
     Active Substance: DEXAMETHASONE
     Indication: PROPHYLAXIS
     Dosage: ?          OTHER FREQUENCY:X1;?
     Route: 040
     Dates: start: 20210422, end: 20210422
  7. ONDANSETRON [Suspect]
     Active Substance: ONDANSETRON
     Indication: PROPHYLAXIS OF NAUSEA AND VOMITING
     Dosage: ?          OTHER FREQUENCY:X1;?
     Route: 040
     Dates: start: 20210422, end: 20210422
  8. LACTATED RINGERS 1,000ML BAG ICU MEDICAL [Concomitant]
     Dates: start: 20210422, end: 20210422
  9. MIDAZOLAM 2MG/2ML FRESENIUS SIMPLIST SYR [Concomitant]
     Dates: start: 20210422, end: 20210422
  10. BUPIVACAINE 0.25%  30ML PFIZER/HOSPIRA [Concomitant]
     Dates: start: 20210422, end: 20210422
  11. CEFAZOLIN 1GM VIAL HIKMA [Concomitant]
     Dates: start: 20210422, end: 20210422

REACTIONS (4)
  - Hypersensitivity [None]
  - Product closure issue [None]
  - Chemical poisoning [None]
  - Rubber sensitivity [None]

NARRATIVE: CASE EVENT DATE: 20210422
